FAERS Safety Report 25027597 (Version 1)
Quarter: 2025Q1

REPORT INFORMATION
  Report Type: Spontaneous
  Country: US (occurrence: US)
  Receive Date: 20250301
  Receipt Date: 20250301
  Transmission Date: 20250408
  Serious: No
  Sender: SANOFI AVENTIS
  Company Number: US-SA-2025SA057936

PATIENT
  Age: 69 Year
  Sex: Male

DRUGS (2)
  1. DUPIXENT [Suspect]
     Active Substance: DUPILUMAB
     Indication: Eczema
     Dosage: 300 MG, QOW
     Route: 058
     Dates: start: 20241018
  2. DEVICE [Concomitant]
     Active Substance: DEVICE

REACTIONS (8)
  - Temperature intolerance [Unknown]
  - Emotional disorder [Unknown]
  - Mood altered [Unknown]
  - Pruritus [Unknown]
  - Erythema [Unknown]
  - Eczema [Unknown]
  - Drug ineffective [Unknown]
  - Inappropriate schedule of product administration [Unknown]
